FAERS Safety Report 4715299-1 (Version None)
Quarter: 2005Q3

REPORT INFORMATION
  Report Type: 
  Country: None (occurrence: None)
  Receive Date: 20050715
  Receipt Date: 20050707
  Transmission Date: 20060218
  Serious: Yes (Hospitalization, Other)
  Sender: FDA-Public Use
  Company Number: US-BRISTOL-MYERS SQUIBB COMPANY-13028105

PATIENT
  Age: 61 Year
  Sex: Male
  Weight: 77 kg

DRUGS (13)
  1. CETUXIMAB [Suspect]
     Indication: SQUAMOUS CELL CARCINOMA
     Dosage: INITIAL TX DATE: 24-MAY-05. TOTAL DOSE ADM THIS COURSE: 472 MG.
     Route: 042
     Dates: start: 20050628, end: 20050628
  2. CISPLATIN [Suspect]
     Indication: SQUAMOUS CELL CARCINOMA
     Dosage: INITIAL TX DATE: 24-MAY-05. DOSE DUE ON 28-JUN-05 HELD DUE TO NEUTROPENIA.
     Route: 042
     Dates: start: 20050607, end: 20050607
  3. RADIATION THERAPY [Suspect]
     Indication: SQUAMOUS CELL CARCINOMA
     Dosage: TOTAL DOSE TO DATE: 25.2 GY. ADM BY EXTERNAL BEAM, IMRT. # OF FRACTIONS: 35.  # OF ELAPSED DAYS: 25.
     Dates: start: 20050701, end: 20050701
  4. FAMOTIDINE [Suspect]
  5. MORPHINE SULFATE [Suspect]
  6. ACCUPRIL [Suspect]
  7. ATIVAN [Suspect]
  8. HYDROCHLOROTHIAZIDE [Suspect]
  9. FENTANYL [Suspect]
  10. HEPARIN [Suspect]
  11. VALPROATE SODIUM [Suspect]
  12. LIPITOR [Concomitant]
  13. DOCUSATE SODIUM [Concomitant]

REACTIONS (10)
  - ASPARTATE AMINOTRANSFERASE INCREASED [None]
  - BLOOD CREATINE PHOSPHOKINASE INCREASED [None]
  - BLOOD CREATININE INCREASED [None]
  - DEHYDRATION [None]
  - HYPOTENSION [None]
  - HYPOXIA [None]
  - MUCOSAL INFLAMMATION [None]
  - MYOCARDIAL ISCHAEMIA [None]
  - SOMNOLENCE [None]
  - TROPONIN T INCREASED [None]
